FAERS Safety Report 19197104 (Version 9)
Quarter: 2021Q4

REPORT INFORMATION
  Report Type: Report from Study
  Country: CH (occurrence: None)
  Receive Date: 20210429
  Receipt Date: 20211110
  Transmission Date: 20220303
  Serious: Yes (Hospitalization)
  Sender: FDA-Public Use
  Company Number: CH-EISAI MEDICAL RESEARCH-EC-2021-091661

PATIENT
  Age: 66 Year
  Sex: Male
  Weight: 71.4 kg

DRUGS (17)
  1. LENVATINIB [Suspect]
     Active Substance: LENVATINIB
     Indication: Malignant melanoma
     Route: 048
     Dates: start: 20201123, end: 20210601
  2. PEMBROLIZUMAB [Suspect]
     Active Substance: PEMBROLIZUMAB
     Indication: Malignant melanoma
     Route: 041
     Dates: start: 20201123, end: 20210104
  3. PEMBROLIZUMAB [Suspect]
     Active Substance: PEMBROLIZUMAB
     Route: 041
     Dates: start: 20210215, end: 20210215
  4. PEMBROLIZUMAB [Suspect]
     Active Substance: PEMBROLIZUMAB
     Route: 041
     Dates: start: 20210331, end: 20210331
  5. PEMBROLIZUMAB [Suspect]
     Active Substance: PEMBROLIZUMAB
     Route: 041
     Dates: start: 20210520, end: 20210520
  6. QUAVONLIMAB [Suspect]
     Active Substance: QUAVONLIMAB
     Indication: Malignant melanoma
     Route: 041
     Dates: start: 20201123, end: 20210104
  7. QUAVONLIMAB [Suspect]
     Active Substance: QUAVONLIMAB
     Route: 041
     Dates: start: 20210215, end: 20210215
  8. QUAVONLIMAB [Suspect]
     Active Substance: QUAVONLIMAB
     Route: 041
     Dates: start: 20210331, end: 20210331
  9. QUAVONLIMAB [Suspect]
     Active Substance: QUAVONLIMAB
     Route: 041
     Dates: start: 20210520, end: 20210520
  10. PANTOPRAZOLE [Concomitant]
     Active Substance: PANTOPRAZOLE
     Dates: start: 201501
  11. CANDESARTAN [Concomitant]
     Active Substance: CANDESARTAN
     Dates: start: 201801
  12. CYANOCOBALAMIN [Concomitant]
     Active Substance: CYANOCOBALAMIN
     Dates: start: 20201010
  13. GLUTATHIONE [Concomitant]
     Active Substance: GLUTATHIONE
     Dates: start: 20201010
  14. OMEGA-3-ACID ETHYL ESTERS [Concomitant]
     Active Substance: OMEGA-3-ACID ETHYL ESTERS
     Dates: start: 20201010
  15. CODEINE PHOSPHATE\GUAIFENESIN [Concomitant]
     Active Substance: CODEINE PHOSPHATE\GUAIFENESIN
     Dates: start: 20201126
  16. NASENSALBE RUEDI SPIRIG [Concomitant]
     Dates: start: 20210104
  17. REDOXON [Concomitant]
     Dates: start: 20210213

REACTIONS (1)
  - Colitis [Recovered/Resolved]

NARRATIVE: CASE EVENT DATE: 20210329
